FAERS Safety Report 10250245 (Version 2)
Quarter: 2014Q2

REPORT INFORMATION
  Report Type: Spontaneous
  Country: US (occurrence: US)
  Receive Date: 20140620
  Receipt Date: 20140620
  Transmission Date: 20141212
  Serious: Yes (Other)
  Sender: FDA-Public Use
  Company Number: US-CUBIST PHARMACEUTICAL, INC.-2014CBST000037

PATIENT
  Sex: 0

DRUGS (20)
  1. CUBICIN [Suspect]
     Indication: STAPHYLOCOCCAL INFECTION
     Dosage: 6.0 MG/KG, Q24H
     Route: 042
     Dates: start: 20131225, end: 20140106
  2. CUBICIN [Suspect]
     Indication: POST PROCEDURAL INFECTION
     Dosage: 680 MG, Q24H
     Route: 042
     Dates: start: 20131225, end: 20140106
  3. CUBICIN [Suspect]
     Indication: OFF LABEL USE
  4. CIPROFLOXACIN [Concomitant]
     Indication: STAPHYLOCOCCAL INFECTION
     Dosage: 750 MG, BID
     Route: 065
     Dates: start: 20131230
  5. CIPROFLOXACIN [Concomitant]
     Indication: POST PROCEDURAL INFECTION
  6. ALDACTONE                          /00006201/ [Concomitant]
     Indication: PRODUCT USED FOR UNKNOWN INDICATION
     Dosage: 25 MG, QD
     Route: 065
  7. ASPIRIN (E.C.) [Concomitant]
     Indication: PRODUCT USED FOR UNKNOWN INDICATION
     Dosage: 81 MG, QD
     Route: 065
  8. BUSPIRON                           /00791501/ [Concomitant]
     Indication: PRODUCT USED FOR UNKNOWN INDICATION
     Dosage: 10 MG, BID
     Route: 065
  9. CELEXA                             /00582602/ [Concomitant]
     Indication: PRODUCT USED FOR UNKNOWN INDICATION
     Dosage: 40 MG, QD
     Route: 065
  10. ESTRADIOL [Concomitant]
     Indication: PRODUCT USED FOR UNKNOWN INDICATION
     Dosage: 1 MG, QD
     Route: 065
  11. LASIX                              /00032601/ [Concomitant]
     Indication: PRODUCT USED FOR UNKNOWN INDICATION
     Dosage: 40 MG, QD
     Route: 065
  12. NEURONTIN [Concomitant]
     Indication: PRODUCT USED FOR UNKNOWN INDICATION
     Dosage: 400 MG, TID
     Route: 065
  13. PRILOSEC                           /00661201/ [Concomitant]
     Indication: PRODUCT USED FOR UNKNOWN INDICATION
     Dosage: 20 MG, QD
     Route: 065
  14. VASOTEC                            /00574902/ [Concomitant]
     Indication: PRODUCT USED FOR UNKNOWN INDICATION
     Dosage: 10 MG, QD
     Route: 065
  15. WELLBUTRIN [Concomitant]
     Indication: PRODUCT USED FOR UNKNOWN INDICATION
     Dosage: 150 MG, BID
     Route: 065
  16. ZANAFLEX [Concomitant]
     Indication: PRODUCT USED FOR UNKNOWN INDICATION
     Dosage: 4 MG, QD
     Route: 065
  17. MOBIC [Concomitant]
     Indication: PRODUCT USED FOR UNKNOWN INDICATION
     Dosage: 15 MG, QD
     Route: 065
  18. RELAFEN [Concomitant]
     Indication: PRODUCT USED FOR UNKNOWN INDICATION
     Dosage: 780 MG, 2 IN THE MORNING
     Route: 065
  19. FENOFIBRATE [Concomitant]
     Indication: PRODUCT USED FOR UNKNOWN INDICATION
     Dosage: 150 MG, QD
     Route: 065
  20. PERCOCET                           /00446701/ [Concomitant]
     Indication: PRODUCT USED FOR UNKNOWN INDICATION
     Dosage: 7.5/325, Q4H PPA
     Route: 065
     Dates: start: 20131218

REACTIONS (14)
  - Dyskinesia [Recovered/Resolved]
  - Gaze palsy [Recovered/Resolved]
  - Aphasia [Recovered/Resolved]
  - Gait disturbance [Recovered/Resolved]
  - Muscle twitching [Recovered/Resolved]
  - Myalgia [Recovered/Resolved]
  - Blood creatine phosphokinase increased [Recovered/Resolved]
  - Sudden onset of sleep [Recovered/Resolved]
  - Moaning [Recovered/Resolved]
  - Pain [Recovered/Resolved]
  - Muscle spasms [Unknown]
  - Muscular weakness [Not Recovered/Not Resolved]
  - Drug hypersensitivity [Recovered/Resolved]
  - Fatigue [Unknown]
